FAERS Safety Report 15252229 (Version 1)
Quarter: 2018Q3

REPORT INFORMATION
  Report Type: Spontaneous
  Country: US (occurrence: US)
  Receive Date: 20180807
  Receipt Date: 20180807
  Transmission Date: 20181010
  Serious: Yes (Hospitalization, Other)
  Sender: FDA-Public Use
  Company Number: US-SHIRE-US201829806

PATIENT
  Sex: Female

DRUGS (1)
  1. GATTEX [Suspect]
     Active Substance: TEDUGLUTIDE\WATER
     Indication: PRODUCT USED FOR UNKNOWN INDICATION
     Dosage: 0.99 UNK, UNK
     Route: 065
     Dates: start: 20180521

REACTIONS (3)
  - Weight increased [Recovering/Resolving]
  - Device related infection [Recovered/Resolved]
  - Gastrointestinal infection [Recovered/Resolved]
